FAERS Safety Report 5898695-9 (Version None)
Quarter: 2008Q3

REPORT INFORMATION
  Report Type: 
  Country: None (occurrence: None)
  Receive Date: 20080925
  Receipt Date: 20080506
  Transmission Date: 20090109
  Serious: No
  Sender: FDA-Public Use
  Company Number: A0723183A

PATIENT
  Age: 50 Year
  Sex: Male

DRUGS (6)
  1. WELLBUTRIN XL [Suspect]
     Route: 048
     Dates: start: 20031101, end: 20080423
  2. BUPROPION HYDROCHLORIDE [Suspect]
     Dosage: 200MG TWICE PER DAY
     Route: 048
     Dates: start: 20070201
  3. WELLBUTRIN SR [Concomitant]
     Indication: DEPRESSION
     Dosage: 300MG TWICE PER DAY
     Route: 048
     Dates: start: 20000101, end: 20031101
  4. AMBIEN [Concomitant]
  5. XANAX [Concomitant]
  6. SIMVASTATIN [Concomitant]

REACTIONS (1)
  - TINNITUS [None]
